FAERS Safety Report 23527684 (Version 2)
Quarter: 2024Q1

REPORT INFORMATION
  Report Type: Spontaneous
  Country: CA (occurrence: CA)
  Receive Date: 20240215
  Receipt Date: 20240301
  Transmission Date: 20240410
  Serious: Yes (Other)
  Sender: FDA-Public Use
  Company Number: CA-Harrow Eye-2153217

PATIENT
  Age: 68 Year
  Sex: Male

DRUGS (3)
  1. ILEVRO [Suspect]
     Active Substance: NEPAFENAC
     Route: 047
     Dates: start: 20230222
  2. AZARGA [Concomitant]
     Active Substance: BRINZOLAMIDE\TIMOLOL MALEATE
  3. VYZULTA [Concomitant]
     Active Substance: LATANOPROSTENE BUNOD

REACTIONS (3)
  - Blindness [Unknown]
  - Drug ineffective [Unknown]
  - Off label use [Unknown]
